FAERS Safety Report 22161009 (Version 2)
Quarter: 2023Q2

REPORT INFORMATION
  Report Type: Report from Study
  Country: TW (occurrence: None)
  Receive Date: 20230331
  Receipt Date: 20230410
  Transmission Date: 20230722
  Serious: Yes (Death, Other)
  Sender: FDA-Public Use
  Company Number: TW-Merck Healthcare KGaA-9392707

PATIENT
  Age: 72 Year
  Sex: Female

DRUGS (1)
  1. MAVENCLAD [Suspect]
     Active Substance: CLADRIBINE
     Indication: Multiple sclerosis
     Dosage: THERAPY
     Route: 048
     Dates: start: 20221214, end: 20230115

REACTIONS (3)
  - Pneumonia [Fatal]
  - Sepsis [Fatal]
  - COVID-19 [Unknown]

NARRATIVE: CASE EVENT DATE: 20230121
